FAERS Safety Report 24427054 (Version 2)
Quarter: 2024Q4

REPORT INFORMATION
  Report Type: Report from Study
  Country: US (occurrence: US)
  Receive Date: 20241011
  Receipt Date: 20241018
  Transmission Date: 20250115
  Serious: Yes (Hospitalization, Other)
  Sender: AMGEN
  Company Number: US-AMGEN-USASP2024200224

PATIENT
  Age: 69 Year
  Sex: Female

DRUGS (4)
  1. NPLATE [Suspect]
     Active Substance: ROMIPLOSTIM
     Indication: Immune thrombocytopenia
     Dosage: 575 MICROGRAM, QWK
     Route: 065
     Dates: start: 202007
  2. TAVALISSE [Concomitant]
     Active Substance: FOSTAMATINIB
     Indication: Immune thrombocytopenia
     Dosage: 150 MILLIGRAM, BID
     Dates: start: 2024
  3. PREDNISONE [Concomitant]
     Active Substance: PREDNISONE
     Indication: Platelet count decreased
     Dosage: 5 MILLIGRAM, QD
  4. DAPSONE [Concomitant]
     Active Substance: DAPSONE
     Indication: Rheumatoid arthritis
     Dosage: UNK

REACTIONS (5)
  - Hepatic cirrhosis [Unknown]
  - Abdominal distension [Unknown]
  - Lung transplant [Unknown]
  - Therapeutic product effect decreased [Unknown]
  - Platelet count decreased [Unknown]

NARRATIVE: CASE EVENT DATE: 20201201
